FAERS Safety Report 5680488-9 (Version None)
Quarter: 2008Q1

REPORT INFORMATION
  Report Type: 
  Country: None (occurrence: None)
  Receive Date: 20080326
  Receipt Date: 20080319
  Transmission Date: 20080703
  Serious: Yes (Life-Threatening)
  Sender: FDA-Public Use
  Company Number: JP-AVENTIS-200810684JP

PATIENT
  Age: 80 Year
  Sex: Female

DRUGS (10)
  1. LANTUS [Suspect]
     Indication: DIABETES MELLITUS
     Dosage: DOSE: 15 UNITS
     Route: 058
     Dates: start: 20071022
  2. LANTUS [Suspect]
     Dosage: DOSE: 20 UNITS
     Route: 058
     Dates: start: 20080109
  3. LANTUS [Suspect]
     Dosage: DOSE: 25 UNITS/DAY
     Route: 058
     Dates: start: 20080116
  4. OPTICLIK (INSULIN INJECTION PEN) [Suspect]
  5. DIOVAN [Concomitant]
     Indication: HYPERTENSION
     Route: 048
     Dates: start: 20070903
  6. CONIEL [Concomitant]
     Indication: HYPERTENSION
     Route: 048
     Dates: start: 20071218
  7. LASIX [Concomitant]
     Indication: OEDEMA
     Route: 048
     Dates: start: 20080109
  8. BASEN [Concomitant]
     Indication: DIABETES MELLITUS
     Route: 048
     Dates: start: 20080109
  9. TORSEMIDE [Concomitant]
     Indication: OEDEMA
     Route: 048
     Dates: start: 20080116
  10. CRESTOR [Concomitant]
     Indication: HYPERLIPIDAEMIA
     Route: 048
     Dates: start: 20080116

REACTIONS (3)
  - COMA [None]
  - HYPOGLYCAEMIC ENCEPHALOPATHY [None]
  - OVERDOSE [None]
